FAERS Safety Report 11119112 (Version 2)
Quarter: 2015Q3

REPORT INFORMATION
  Report Type: Report from Study
  Country: US (occurrence: US)
  Receive Date: 20150518
  Receipt Date: 20150810
  Transmission Date: 20151125
  Serious: Yes (Other)
  Sender: FDA-Public Use
  Company Number: US-SA-2015SA022107

PATIENT
  Age: 54 Year
  Sex: Male

DRUGS (1)
  1. AUBAGIO [Suspect]
     Active Substance: TERIFLUNOMIDE
     Indication: MULTIPLE SCLEROSIS
     Route: 048
     Dates: start: 20150201

REACTIONS (11)
  - Walking aid user [Unknown]
  - Pain [Unknown]
  - Muscle spasms [Unknown]
  - Frustration [Unknown]
  - Hypoaesthesia [Unknown]
  - Dyspepsia [Unknown]
  - Pain in extremity [Unknown]
  - Insomnia [Unknown]
  - Fall [Unknown]
  - Impaired work ability [Unknown]
  - Headache [Unknown]

NARRATIVE: CASE EVENT DATE: 2015
